FAERS Safety Report 18849680 (Version 1)
Quarter: 2021Q1

REPORT INFORMATION
  Report Type: Spontaneous
  Country: FR (occurrence: FR)
  Receive Date: 20210205
  Receipt Date: 20210205
  Transmission Date: 20210419
  Serious: Yes (Other)
  Sender: FDA-Public Use
  Company Number: FR-TEVA-2021-FR-1875791

PATIENT
  Age: 69 Year
  Sex: Male
  Weight: 67 kg

DRUGS (2)
  1. DICLOFENAC [Suspect]
     Active Substance: DICLOFENAC
     Indication: OSTEOARTHRITIS
     Dosage: NOT KNOWN
     Route: 048
     Dates: end: 201911
  2. ZALTRAP [Suspect]
     Active Substance: ZIV-AFLIBERCEPT
     Indication: ADENOCARCINOMA OF COLON
     Dosage: DOSAGE ADAPTED TO THE PATIENT^S CLINIC AND PARACLINICAL, UNIT DOSE: 275 MG
     Route: 041
     Dates: start: 20171114

REACTIONS (1)
  - Chronic kidney disease [Not Recovered/Not Resolved]

NARRATIVE: CASE EVENT DATE: 20180403
